FAERS Safety Report 16601639 (Version 3)
Quarter: 2019Q3

REPORT INFORMATION
  Report Type: Spontaneous
  Country: US (occurrence: US)
  Receive Date: 20190719
  Receipt Date: 20190805
  Transmission Date: 20191004
  Serious: Yes (Disabling, Other)
  Sender: FDA-Public Use
  Company Number: US-PFIZER INC-2019303593

PATIENT
  Age: 41 Month
  Sex: Female

DRUGS (5)
  1. CARBOPLATIN. [Suspect]
     Active Substance: CARBOPLATIN
     Indication: MEDULLOBLASTOMA
     Dosage: 35 MG/M2,DAILY, DURING RADIATION THERAPY FOR 30 DOSES
     Route: 042
  2. LOMUSTINE. [Concomitant]
     Active Substance: LOMUSTINE
     Indication: MEDULLOBLASTOMA
     Dosage: 75 MG/M2, 3 CYCLIC, CYCLES 1, 2, 4, 5, 7, 8 (42 DAYS PER CYCLE), 75 MG/M2 ON DAY 1 OF EACH CYCLE
     Route: 048
  3. MESNA. [Concomitant]
     Active Substance: MESNA
     Indication: MEDULLOBLASTOMA
     Dosage: 360 MG/M2, CYCLIC, CYCLES 3, 6, 9 (28 DAYS PER CYCLE), 360 MG/M2 GIVEN AT 4 AND AGAIN AT 8 HOURS
     Route: 042
  4. CYCLOPHOSPHAMIDE. [Concomitant]
     Active Substance: CYCLOPHOSPHAMIDE
     Indication: MEDULLOBLASTOMA
     Dosage: 1000 MG/M2, CYCLIC, CYCLES 3, 6, 9 (28 DAYS PER CYCLE), 1000 MG/M2 ON DAYS 1 AND 2 OF EACH CYCLE
     Route: 042
  5. CISPLATIN. [Suspect]
     Active Substance: CISPLATIN
     Indication: MEDULLOBLASTOMA
     Dosage: 75 MG/M2, 3 CYCLIC, 75 MG/M2 ON DAY 1 OF EACH CYCLE(50% DOSE REDUCTION FOR CYCLES 5,7, AND 8)
     Route: 042

REACTIONS (4)
  - Thrombocytopenia [Not Recovered/Not Resolved]
  - Off label use [Unknown]
  - Product use in unapproved indication [Unknown]
  - Deafness neurosensory [Not Recovered/Not Resolved]
